FAERS Safety Report 9645324 (Version 2)
Quarter: 2013Q4

REPORT INFORMATION
  Report Type: Spontaneous
  Country: DK (occurrence: DK)
  Receive Date: 20131025
  Receipt Date: 20131202
  Transmission Date: 20140711
  Serious: Yes (Hospitalization)
  Sender: FDA-Public Use
  Company Number: DK-ELI_LILLY_AND_COMPANY-DK201310005621

PATIENT
  Age: 56 Year
  Sex: Male
  Weight: 83 kg

DRUGS (5)
  1. EFIENT [Suspect]
     Indication: ANGINA PECTORIS
     Dosage: 60 MG, SINGLE
     Route: 048
     Dates: start: 20110727, end: 20110727
  2. EFIENT [Suspect]
     Indication: MYOCARDIAL ISCHAEMIA
     Dosage: 10 MG, QD
     Route: 048
     Dates: start: 20110728, end: 20120727
  3. EFIENT [Suspect]
     Indication: PERCUTANEOUS CORONARY INTERVENTION
  4. ASPIRIN [Concomitant]
     Dosage: 300-500 MG
     Route: 048
  5. ASPIRIN [Concomitant]
     Dosage: 100 MG, QD
     Route: 048

REACTIONS (1)
  - Angina pectoris [Recovered/Resolved]
